FAERS Safety Report 5834054-2 (Version None)
Quarter: 2008Q3

REPORT INFORMATION
  Report Type: 
  Country: None (occurrence: None)
  Receive Date: 20080801
  Receipt Date: 20080801
  Transmission Date: 20090109
  Serious: Yes (Life-Threatening, Other)
  Sender: FDA-Public Use
  Company Number: None

PATIENT
  Age: 20 Year
  Sex: Female
  Weight: 58.9676 kg

DRUGS (8)
  1. CHANTIX [Suspect]
     Indication: SMOKING CESSATION THERAPY
     Dosage: ONE TABLET QD PO
     Route: 048
     Dates: start: 20080720, end: 20080726
  2. CHANTIX [Suspect]
     Indication: SMOKING CESSATION THERAPY
     Dosage: ONE TABLET BID PO
     Route: 048
     Dates: start: 20080726, end: 20080809
  3. EFFEXOR XR [Concomitant]
  4. LAMICTAL [Concomitant]
  5. LEVOTHYROXINE SODIUM [Concomitant]
  6. TETRACYCLINE [Concomitant]
  7. YAZ [Concomitant]
  8. GLYCOPYRRATE [Concomitant]

REACTIONS (8)
  - ANXIETY [None]
  - DEPRESSION [None]
  - FEELING ABNORMAL [None]
  - HAEMATEMESIS [None]
  - MIGRAINE [None]
  - PARANOIA [None]
  - SLEEP DISORDER DUE TO GENERAL MEDICAL CONDITION, INSOMNIA TYPE [None]
  - SUICIDAL IDEATION [None]
